FAERS Safety Report 8386969-1 (Version None)
Quarter: 2012Q2

REPORT INFORMATION
  Report Type: 
  Country: None (occurrence: None)
  Receive Date: 20120523
  Receipt Date: 20120511
  Transmission Date: 20120825
  Serious: Yes (Other)
  Sender: FDA-Public Use
  Company Number: DSJ-2012-08641

PATIENT
  Age: 79 Year
  Sex: Female

DRUGS (3)
  1. EYE DROPS (EYE DROPS) [Concomitant]
  2. AMLODIPINE BESYLATE AND OLMESARTAN MEDOXOMIL [Suspect]
     Indication: HYPERTENSION
     Dosage: 40/5 MG (1 IN 1 D),PER ORAL
     Route: 048
     Dates: start: 20100101, end: 20120501
  3. AMLODIPINE BESYLATE AND OLMESARTAN MEDOXOMIL [Suspect]
     Indication: HYPERTENSION
     Dosage: 40/5 MG (1 IN 1 D),PER ORAL
     Route: 048
     Dates: start: 20120511

REACTIONS (6)
  - TREATMENT NONCOMPLIANCE [None]
  - CATARACT OPERATION [None]
  - HYPERGLYCAEMIA [None]
  - ECONOMIC PROBLEM [None]
  - BLOOD PRESSURE INCREASED [None]
  - DRUG ADMINISTRATION ERROR [None]
